FAERS Safety Report 23354329 (Version 1)
Quarter: 2024Q1

REPORT INFORMATION
  Report Type: Spontaneous
  Country: ES (occurrence: ES)
  Receive Date: 20240101
  Receipt Date: 20240101
  Transmission Date: 20240410
  Serious: Yes (Death, Other)
  Sender: FDA-Public Use
  Company Number: ES-AMGEN-ESPSP2023230912

PATIENT

DRUGS (6)
  1. FILGRASTIM [Suspect]
     Active Substance: FILGRASTIM
     Indication: Prophylaxis
     Dosage: UNK
     Route: 065
  2. HYDROXYUREA [Concomitant]
     Active Substance: HYDROXYUREA
  3. LENALIDOMIDE [Concomitant]
     Active Substance: LENALIDOMIDE
  4. VEMURAFENIB [Concomitant]
     Active Substance: VEMURAFENIB
  5. TRAMETINIB [Concomitant]
     Active Substance: TRAMETINIB
  6. IMATINIB [Concomitant]
     Active Substance: IMATINIB

REACTIONS (12)
  - Myelodysplastic syndrome [Fatal]
  - Lymphoproliferative disorder [Fatal]
  - Lymphocytic leukaemia [Fatal]
  - Adenocarcinoma of colon [Fatal]
  - Squamous cell carcinoma of lung [Fatal]
  - Bladder cancer [Fatal]
  - Ovarian epithelial cancer [Fatal]
  - Breast cancer metastatic [Fatal]
  - Amyloidosis [Unknown]
  - Polyarteritis nodosa [Unknown]
  - Psoriatic arthropathy [Unknown]
  - Acute febrile neutrophilic dermatosis [Unknown]
